FAERS Safety Report 7552366-1 (Version None)
Quarter: 2011Q2

REPORT INFORMATION
  Report Type: 
  Country: None (occurrence: None)
  Receive Date: 20110616
  Receipt Date: 20081106
  Transmission Date: 20111010
  Serious: Yes (Death, Other)
  Sender: FDA-Public Use
  Company Number: PHHY2008US10414

PATIENT
  Sex: Male
  Weight: 46 kg

DRUGS (1)
  1. EXJADE [Suspect]
     Indication: IRON OVERLOAD
     Dosage: UNK
     Route: 048
     Dates: start: 20080402, end: 20080501

REACTIONS (3)
  - EPISTAXIS [None]
  - DEATH [None]
  - HAEMORRHAGE [None]
